FAERS Safety Report 19642401 (Version 1)
Quarter: 2021Q3

REPORT INFORMATION
  Report Type: Report from Study
  Country: None (occurrence: CA)
  Receive Date: 20210731
  Receipt Date: 20210731
  Transmission Date: 20211014
  Serious: Yes (Other)
  Sender: FDA-Public Use
  Company Number: CA-ABBVIE-20K-028-3672376-00

PATIENT
  Age: 63 Year
  Sex: Male

DRUGS (2)
  1. RINVOQ [Suspect]
     Active Substance: UPADACITINIB
     Indication: RHEUMATOID ARTHRITIS
     Route: 048
     Dates: start: 20201116, end: 2020
  2. RINVOQ [Suspect]
     Active Substance: UPADACITINIB
     Route: 048
     Dates: start: 20201213, end: 20201217

REACTIONS (10)
  - Blister infected [Not Recovered/Not Resolved]
  - Foot deformity [Unknown]
  - Cardiac operation [Unknown]
  - Erythema [Unknown]
  - Peripheral swelling [Unknown]
  - Pain [Unknown]
  - Surgery [Unknown]
  - Limb injury [Recovering/Resolving]
  - Joint swelling [Unknown]
  - Arthralgia [Unknown]

NARRATIVE: CASE EVENT DATE: 202011
